FAERS Safety Report 9923102 (Version 1)
Quarter: 2014Q1

REPORT INFORMATION
  Report Type: Spontaneous
  Country: US (occurrence: US)
  Receive Date: 20140225
  Receipt Date: 20140225
  Transmission Date: 20141002
  Serious: No
  Sender: FDA-Public Use
  Company Number: US-AMGEN-USASP2013069667

PATIENT
  Age: 36 Year
  Sex: Female
  Weight: 68.03 kg

DRUGS (2)
  1. ENBREL [Suspect]
     Indication: PRODUCT USED FOR UNKNOWN INDICATION
     Dosage: 50 MG, QWK
     Route: 058
     Dates: start: 2003
  2. MULTIVITAMINS, PLAIN [Concomitant]
     Dosage: UNK

REACTIONS (6)
  - Pyrexia [Unknown]
  - Chills [Unknown]
  - Musculoskeletal stiffness [Unknown]
  - Pain [Unknown]
  - Therapeutic response decreased [Unknown]
  - Influenza [Unknown]
